FAERS Safety Report 9452877 (Version 3)
Quarter: 2013Q3

REPORT INFORMATION
  Report Type: Spontaneous
  Country: JP (occurrence: JP)
  Receive Date: 20130812
  Receipt Date: 20130910
  Transmission Date: 20140515
  Serious: Yes (Life-Threatening, Other)
  Sender: FDA-Public Use
  Company Number: JP-PFIZER INC-2013227908

PATIENT
  Age: 65 Year
  Sex: Female
  Weight: 143 kg

DRUGS (13)
  1. ZYVOX [Suspect]
     Indication: STAPHYLOCOCCAL INFECTION
     Dosage: 600 MG, 2X/DAY
     Route: 041
     Dates: start: 20130801, end: 20130805
  2. SEROQUEL [Interacting]
     Indication: INSOMNIA
     Dosage: 25 MG, 1X/DAY
     Route: 048
     Dates: start: 20130706, end: 20130805
  3. LONGES [Concomitant]
     Indication: HYPERTENSION
     Dosage: 10 MG, 1X/DAY
     Route: 048
     Dates: start: 20130706
  4. LOXONIN [Concomitant]
     Indication: RHEUMATOID ARTHRITIS
     Dosage: 60 MG, 3X/DAY
     Route: 048
  5. RHEUMATREX [Concomitant]
     Indication: RHEUMATOID ARTHRITIS
     Dosage: 12 MG, WEEKLY
     Route: 048
     Dates: end: 20130730
  6. FOLIAMIN [Concomitant]
     Indication: RHEUMATOID ARTHRITIS
     Dosage: 5 MG, WEEKLY
     Route: 048
     Dates: end: 20130801
  7. PREDONINE [Concomitant]
     Indication: RHEUMATOID ARTHRITIS
     Dosage: 5 MG, 2X/DAY
     Route: 048
  8. AZULFIDINE EN [Concomitant]
     Indication: RHEUMATOID ARTHRITIS
     Dosage: 500 MG, 2X/DAY
     Route: 048
  9. TAKEPRON [Concomitant]
     Indication: PROPHYLAXIS AGAINST GASTROINTESTINAL ULCER
     Dosage: 15 MG, 1X/DAY
     Route: 048
  10. BENZALIN [Concomitant]
     Indication: INSOMNIA
     Dosage: 10 MG, 1X/DAY
     Route: 048
     Dates: start: 20130706
  11. CLIDAMACIN [Concomitant]
     Indication: ARTHRITIS BACTERIAL
     Dosage: 600 MG, 2X/DAY
     Route: 041
     Dates: start: 20130730, end: 20130822
  12. RASENAZOLIN [Concomitant]
     Indication: ARTHRITIS BACTERIAL
     Dosage: 1 G, 2X/DAY
     Route: 041
     Dates: start: 20130730, end: 20130730
  13. RASENAZOLIN [Concomitant]
     Dosage: 1 G, 4X/DAY
     Route: 041
     Dates: start: 20130731, end: 20130801

REACTIONS (2)
  - Serotonin syndrome [Recovered/Resolved]
  - Drug interaction [Recovered/Resolved]
